FAERS Safety Report 19562564 (Version 1)
Quarter: 2021Q3

REPORT INFORMATION
  Report Type: Report from Study
  Country: BR (occurrence: BR)
  Receive Date: 20210716
  Receipt Date: 20210716
  Transmission Date: 20211014
  Serious: Yes (Hospitalization)
  Sender: FDA-Public Use
  Company Number: NVSC2021BR156994

PATIENT
  Sex: Male

DRUGS (4)
  1. TEGRETOL [Suspect]
     Active Substance: CARBAMAZEPINE
     Dosage: 10.5 ML, QN
     Route: 048
     Dates: start: 2007
  2. MAREVAN [Concomitant]
     Active Substance: WARFARIN SODIUM
     Dosage: 5 MG
     Route: 048
     Dates: start: 2007
  3. TEGRETOL [Suspect]
     Active Substance: CARBAMAZEPINE
     Indication: CEREBROVASCULAR ACCIDENT
     Dosage: 5 ML, BID
     Route: 048
     Dates: start: 2007
  4. MAREVAN [Concomitant]
     Active Substance: WARFARIN SODIUM
     Indication: CEREBROVASCULAR ACCIDENT
     Dosage: 7.5 MG, QD
     Route: 048
     Dates: start: 2007

REACTIONS (1)
  - Cerebrovascular accident [Recovered/Resolved]

NARRATIVE: CASE EVENT DATE: 2019
